FAERS Safety Report 7157730-0 (Version None)
Quarter: 2010Q4

REPORT INFORMATION
  Report Type: 
  Country: None (occurrence: None)
  Receive Date: 20101214
  Receipt Date: 20100129
  Transmission Date: 20110411
  Serious: No
  Sender: FDA-Public Use
  Company Number: US-ASTRAZENECA-2010SE04231

PATIENT
  Age: 89 Year
  Sex: Female
  Weight: 52.6 kg

DRUGS (7)
  1. CRESTOR [Suspect]
     Route: 048
     Dates: start: 20090101
  2. COREG [Concomitant]
  3. ASPIRIN [Concomitant]
  4. EYE MEDICATION [Concomitant]
     Indication: DRY EYE
  5. EYE MEDICATION [Concomitant]
     Indication: EYE PAIN
  6. TYLENOL (CAPLET) [Concomitant]
  7. ADVIL [Concomitant]

REACTIONS (2)
  - GAIT DISTURBANCE [None]
  - PAIN IN EXTREMITY [None]
